FAERS Safety Report 25352953 (Version 2)
Quarter: 2025Q3

REPORT INFORMATION
  Report Type: Spontaneous
  Country: EU (occurrence: EU)
  Receive Date: 20250523
  Receipt Date: 20250716
  Transmission Date: 20251021
  Serious: Yes (Hospitalization)
  Sender: PFIZER
  Company Number: EU-PFIZER INC-PV202500061738

PATIENT
  Age: 67 Year
  Sex: Female

DRUGS (5)
  1. ELREXFIO [Suspect]
     Active Substance: ELRANATAMAB-BCMM
     Indication: Plasma cell myeloma
     Dates: start: 20240828
  2. ELREXFIO [Suspect]
     Active Substance: ELRANATAMAB-BCMM
     Dates: start: 20240902
  3. ELREXFIO [Suspect]
     Active Substance: ELRANATAMAB-BCMM
     Dates: start: 20241003
  4. ELREXFIO [Suspect]
     Active Substance: ELRANATAMAB-BCMM
     Dates: start: 20241105
  5. ELREXFIO [Suspect]
     Active Substance: ELRANATAMAB-BCMM
     Dates: start: 20241203

REACTIONS (3)
  - Device related infection [Unknown]
  - Lung disorder [Unknown]
  - COVID-19 [Unknown]

NARRATIVE: CASE EVENT DATE: 20240101
